FAERS Safety Report 5914203-8 (Version None)
Quarter: 2008Q4

REPORT INFORMATION
  Report Type: 
  Country: None (occurrence: None)
  Receive Date: 20081009
  Receipt Date: 20080930
  Transmission Date: 20090506
  Serious: Yes (Other)
  Sender: FDA-Public Use
  Company Number: US-PFIZER INC-2008082629

PATIENT
  Age: 52 Year
  Sex: Female

DRUGS (4)
  1. CELEBREX [Suspect]
     Indication: PAIN IN EXTREMITY
     Dates: start: 20080929, end: 20080929
  2. LIPITOR [Suspect]
     Indication: BLOOD CHOLESTEROL INCREASED
  3. VYTORIN [Concomitant]
  4. VITAMINS [Concomitant]

REACTIONS (5)
  - DRUG INTOLERANCE [None]
  - HYPOAESTHESIA ORAL [None]
  - PRURITUS [None]
  - TREMOR [None]
  - WHEEZING [None]
